FAERS Safety Report 9241770 (Version 1)
Quarter: 2013Q2

REPORT INFORMATION
  Report Type: Report from Study
  Country: US (occurrence: US)
  Receive Date: 20130419
  Receipt Date: 20130419
  Transmission Date: 20140414
  Serious: Yes (Other)
  Sender: FDA-Public Use
  Company Number: US-JNJFOC-20130406282

PATIENT
  Age: 71 Year
  Sex: Female
  Weight: 56.7 kg

DRUGS (14)
  1. REMICADE [Suspect]
     Indication: PSORIATIC ARTHROPATHY
     Route: 042
     Dates: start: 2010
  2. COQ10 [Concomitant]
     Indication: CARDIAC DISORDER
     Route: 048
     Dates: start: 2011
  3. JANUMET [Concomitant]
     Indication: DIABETES MELLITUS
     Route: 048
     Dates: start: 2005
  4. B12 [Concomitant]
     Indication: VITAMIN SUPPLEMENTATION
     Route: 065
     Dates: start: 2007
  5. PLAVIX [Concomitant]
     Indication: THROMBOSIS
     Route: 048
     Dates: start: 2011
  6. LISINOPRIL [Concomitant]
     Indication: BLOOD PRESSURE
     Route: 048
     Dates: start: 2008
  7. PAXIL [Concomitant]
     Indication: HEADACHE
     Route: 048
     Dates: start: 2003
  8. CRESTOR [Concomitant]
     Indication: BLOOD CHOLESTEROL
     Route: 048
     Dates: start: 2008
  9. METHOTREXATE [Concomitant]
     Indication: RHEUMATOID ARTHRITIS
     Route: 048
     Dates: start: 1998
  10. PROPRANOLOL [Concomitant]
     Indication: HEADACHE
     Route: 048
     Dates: start: 2010
  11. FOLIC ACID [Concomitant]
     Indication: MEDICAL DIET
     Route: 048
     Dates: start: 2007
  12. FISH OIL [Concomitant]
     Indication: MEDICAL DIET
     Route: 048
     Dates: start: 2005
  13. NIACIN [Concomitant]
     Indication: MEDICAL DIET
     Route: 048
     Dates: start: 2007
  14. NEXIUM [Concomitant]
     Indication: DYSPEPSIA
     Route: 048
     Dates: start: 2001

REACTIONS (1)
  - Skin cancer [Recovered/Resolved]
